FAERS Safety Report 6248414-1 (Version None)
Quarter: 2009Q2

REPORT INFORMATION
  Report Type: 
  Country: None (occurrence: None)
  Receive Date: 20090629
  Receipt Date: 20090624
  Transmission Date: 20091009
  Serious: Yes (Death, Other)
  Sender: FDA-Public Use
  Company Number: PHHY2009BR25519

PATIENT
  Sex: Female

DRUGS (4)
  1. ZELMAC [Suspect]
     Indication: CONSTIPATION
     Dosage: UNK
     Route: 048
     Dates: start: 20040101
  2. HIDANTAL [Concomitant]
     Indication: CONVULSION
  3. PURAN T4 [Concomitant]
     Indication: HYPERTHYROIDISM
  4. MACRODANTINA [Concomitant]
     Indication: URINARY TRACT INFECTION

REACTIONS (3)
  - CARDIOPULMONARY FAILURE [None]
  - INFLUENZA [None]
  - PNEUMONIA [None]
